FAERS Safety Report 7605038-9 (Version None)
Quarter: 2011Q3

REPORT INFORMATION
  Report Type: 
  Country: None (occurrence: None)
  Receive Date: 20110713
  Receipt Date: 20100121
  Transmission Date: 20111222
  Serious: No
  Sender: FDA-Public Use
  Company Number: 2010BI003196

PATIENT
  Sex: Male

DRUGS (1)
  1. TYSABRI [Suspect]
     Indication: MULTIPLE SCLEROSIS
     Route: 042
     Dates: start: 20091105, end: 20110113

REACTIONS (4)
  - NEUROPATHY PERIPHERAL [None]
  - MUSCLE SPASTICITY [None]
  - TRIGEMINAL NEURALGIA [None]
  - TEMPERATURE INTOLERANCE [None]
